FAERS Safety Report 6663591-6 (Version None)
Quarter: 2010Q2

REPORT INFORMATION
  Report Type: 
  Country: None (occurrence: None)
  Receive Date: 20100401
  Receipt Date: 20100326
  Transmission Date: 20101027
  Serious: Yes (Death)
  Sender: FDA-Public Use
  Company Number: NL-ROCHE-681320

PATIENT
  Sex: Female

DRUGS (7)
  1. AVASTIN [Suspect]
     Route: 042
     Dates: start: 20080101
  2. TARCEVA [Suspect]
     Route: 048
     Dates: start: 20080101
  3. HERCEPTIN [Suspect]
     Route: 042
     Dates: start: 20080101
  4. XELODA [Suspect]
     Dosage: FREQUENCY: DAY 1-14, EVERY 3 WEEKS
     Route: 048
     Dates: start: 20080101, end: 20080401
  5. OXALIPLATIN [Suspect]
     Dosage: FREQUENCY: DAY 1 EVERY 3 WEEKS
     Route: 042
     Dates: start: 20080101, end: 20080401
  6. LAPATINIB [Suspect]
     Route: 048
     Dates: start: 20080101
  7. EPIRUBICIN [Suspect]
     Dosage: FREQUENCY: DAY 1 EVERY 3 WEEKS
     Route: 042
     Dates: start: 20080101, end: 20080401

REACTIONS (1)
  - DISEASE PROGRESSION [None]
